FAERS Safety Report 6366210-1 (Version None)
Quarter: 2009Q3

REPORT INFORMATION
  Report Type: 
  Country: None (occurrence: None)
  Receive Date: 20090915
  Receipt Date: 20090908
  Transmission Date: 20100115
  Serious: Yes (Death, Other)
  Sender: FDA-Public Use
  Company Number: CERZ-1000785

PATIENT
  Age: 15 Year
  Sex: Male

DRUGS (1)
  1. CEREZYME [Suspect]
     Indication: GAUCHER'S DISEASE
     Dosage: 60 U/KG, Q2W; INTRAVENOUS
     Route: 042
     Dates: start: 19980319

REACTIONS (7)
  - APNOEA [None]
  - CONVULSION [None]
  - DISEASE PROGRESSION [None]
  - GAUCHER'S DISEASE [None]
  - HEART VALVE CALCIFICATION [None]
  - NERVOUS SYSTEM DISORDER [None]
  - OCULOMOTOR STUDY ABNORMAL [None]
